FAERS Safety Report 4716673-X (Version None)
Quarter: 2005Q3

REPORT INFORMATION
  Report Type: 
  Country: None (occurrence: None)
  Receive Date: 20050714
  Receipt Date: 20050701
  Transmission Date: 20060218
  Serious: Yes (Other)
  Sender: FDA-Public Use
  Company Number: 2005096139

PATIENT
  Age: 70 Year
  Sex: Female
  Weight: 51.7101 kg

DRUGS (13)
  1. BEXTRA [Suspect]
     Indication: PAIN
     Dosage: 20 MG (10 MG, 2 IN 1 D), ORAL
     Route: 048
     Dates: start: 20020101, end: 20040301
  2. ZYRTEC [Suspect]
     Indication: MULTIPLE ALLERGIES
     Dosage: (10 MG), ORAL
     Route: 048
  3. CARDIZEM CD [Concomitant]
  4. MONTELUKAST (MONTELUKAST) [Concomitant]
  5. FOLIC ACID [Concomitant]
  6. PLAVIX [Concomitant]
  7. ZOLOFT [Concomitant]
  8. ACIPHEX [Concomitant]
  9. ALLEGRA [Concomitant]
  10. CAPOTOPRIL (CAPTOPRIL) [Concomitant]
  11. VITAMIN B12 (VITAMIN B12) [Concomitant]
  12. TYLENOL W/ CODEINE NO. 3 [Concomitant]
  13. TYLOX (OXYCODONE HYDROCHLORIDE, PARACETAMOL) [Concomitant]

REACTIONS (4)
  - ARTERIAL OCCLUSIVE DISEASE [None]
  - BLOOD CHOLESTEROL INCREASED [None]
  - MULTIPLE ALLERGIES [None]
  - SYSTEMIC LUPUS ERYTHEMATOSUS [None]
